FAERS Safety Report 10098784 (Version 1)
Quarter: 2014Q2

REPORT INFORMATION
  Report Type: Spontaneous
  Country: GB (occurrence: GB)
  Receive Date: 20140423
  Receipt Date: 20140423
  Transmission Date: 20141212
  Serious: Yes (Hospitalization)
  Sender: FDA-Public Use
  Company Number: GB-IPSEN BIOPHARMACEUTICALS, INC.-2014-1905

PATIENT
  Sex: Female

DRUGS (6)
  1. AZZALURE [Suspect]
     Indication: SKIN WRINKLING
     Dosage: NOT REPORTED
     Route: 030
     Dates: start: 20140406, end: 20140406
  2. AZZALURE [Suspect]
     Indication: SKIN WRINKLING
  3. AZZALURE [Suspect]
     Indication: SKIN WRINKLING
  4. AZZALURE [Suspect]
     Indication: SKIN WRINKLING
  5. AZZALURE [Suspect]
     Indication: SKIN WRINKLING
  6. AZZALURE [Suspect]
     Indication: OFF LABEL USE

REACTIONS (4)
  - Dyspnoea [Not Recovered/Not Resolved]
  - Dysphagia [Not Recovered/Not Resolved]
  - Diplopia [Not Recovered/Not Resolved]
  - Muscle tightness [Unknown]
